FAERS Safety Report 10299891 (Version 2)
Quarter: 2014Q3

REPORT INFORMATION
  Report Type: Report from Study
  Country: US (occurrence: US)
  Receive Date: 20140711
  Receipt Date: 20140812
  Transmission Date: 20150326
  Serious: Yes (Hospitalization)
  Sender: FDA-Public Use
  Company Number: US-ACTELION-A-US2014-101607

PATIENT
  Age: 43 Year
  Sex: Female

DRUGS (1)
  1. VELETRI [Suspect]
     Active Substance: EPOPROSTENOL
     Indication: COR PULMONALE CHRONIC
     Dosage: 17.2 NG/KG, PER MIN
     Route: 042
     Dates: start: 20130824

REACTIONS (3)
  - Autoimmune disorder [Unknown]
  - Systemic lupus erythematosus [Unknown]
  - Blood count abnormal [Unknown]
